FAERS Safety Report 15917793 (Version 1)
Quarter: 2019Q1

REPORT INFORMATION
  Report Type: Spontaneous
  Country: US (occurrence: US)
  Receive Date: 20190205
  Receipt Date: 20190205
  Transmission Date: 20190417
  Serious: No
  Sender: FDA-Public Use
  Company Number: US-PFIZER INC-2019051256

PATIENT
  Age: 37 Year
  Sex: Female

DRUGS (1)
  1. DIPHENHYDRAMINE HCL [Suspect]
     Active Substance: DIPHENHYDRAMINE HYDROCHLORIDE
     Dosage: UNK

REACTIONS (5)
  - Condition aggravated [Unknown]
  - Restless legs syndrome [Not Recovered/Not Resolved]
  - Drug intolerance [Unknown]
  - Agitation [Unknown]
  - Drug hypersensitivity [Unknown]
